FAERS Safety Report 9912463 (Version 1)
Quarter: 2014Q1

REPORT INFORMATION
  Report Type: Other
  Country: CN (occurrence: CN)
  Receive Date: 20140220
  Receipt Date: 20140220
  Transmission Date: 20141002
  Serious: Yes (Other)
  Sender: FDA-Public Use
  Company Number: CN-BRISTOL-MYERS SQUIBB COMPANY-20232484

PATIENT
  Age: 69 Year
  Sex: Male

DRUGS (4)
  1. CETUXIMAB [Suspect]
     Indication: COLON CANCER
     Dates: start: 20071215
  2. 5-FLUOROURACIL [Suspect]
     Indication: COLON CANCER
     Dates: start: 20071215
  3. OXALIPLATIN [Suspect]
     Indication: COLON CANCER
     Dates: start: 20071215
  4. FOLINIC ACID [Suspect]
     Indication: COLON CANCER
     Dates: start: 20071215

REACTIONS (3)
  - Bone marrow failure [Unknown]
  - Liver function test abnormal [Unknown]
  - Rash [Unknown]
